FAERS Safety Report 16269139 (Version 2)
Quarter: 2019Q3

REPORT INFORMATION
  Report Type: Report from Study
  Country: US (occurrence: US)
  Receive Date: 20190503
  Receipt Date: 20190707
  Transmission Date: 20191004
  Serious: Yes (Hospitalization, Other)
  Sender: FDA-Public Use
  Company Number: US-BIOGEN-2019BI00730811

PATIENT
  Sex: Female

DRUGS (1)
  1. TYSABRI [Suspect]
     Active Substance: NATALIZUMAB
     Indication: MULTIPLE SCLEROSIS
     Route: 065
     Dates: start: 20140918

REACTIONS (7)
  - Memory impairment [Unknown]
  - Neurological symptom [Unknown]
  - Loss of consciousness [Unknown]
  - Intentional self-injury [Unknown]
  - Head injury [Unknown]
  - Cognitive disorder [Unknown]
  - Suicidal ideation [Unknown]
